FAERS Safety Report 5196029-9 (Version None)
Quarter: 2007Q1

REPORT INFORMATION
  Report Type: 
  Country: None (occurrence: None)
  Receive Date: 20070102
  Receipt Date: 20061221
  Transmission Date: 20070707
  Serious: Yes (Hospitalization, Other)
  Sender: FDA-Public Use
  Company Number: PHFR2004GB01730

PATIENT
  Age: 57 Year
  Sex: Male

DRUGS (2)
  1. AMITRIPTYLINE HCL [Concomitant]
     Dosage: 50MG/DAY
  2. CLOZARIL [Suspect]
     Indication: SCHIZOPHRENIA
     Dosage: 400MG DAILY
     Route: 048
     Dates: start: 19940506, end: 20051010

REACTIONS (12)
  - BODY TEMPERATURE INCREASED [None]
  - CIRCULATORY COLLAPSE [None]
  - CONSTIPATION [None]
  - DUODENAL ULCER [None]
  - FAECALOMA [None]
  - GASTRIC ULCER PERFORATION [None]
  - GASTROINTESTINAL HAEMORRHAGE [None]
  - HAEMOGLOBIN DECREASED [None]
  - MALAISE [None]
  - RED BLOOD CELL COUNT DECREASED [None]
  - URINARY TRACT INFECTION [None]
  - WHITE BLOOD CELL COUNT INCREASED [None]
